FAERS Safety Report 4299929-7 (Version None)
Quarter: 2004Q1

REPORT INFORMATION
  Report Type: 
  Country: None (occurrence: None)
  Receive Date: 20040218
  Receipt Date: 20040205
  Transmission Date: 20041129
  Serious: Yes (Hospitalization, Other)
  Sender: FDA-Public Use
  Company Number: EMADSS2003002931

PATIENT
  Age: 24 Year
  Sex: Female

DRUGS (4)
  1. TOPAMAX [Suspect]
     Indication: DRUG USE FOR UNKNOWN INDICATION
     Dosage: 200 MG, 2 IN 1 DAY
     Dates: start: 19990101
  2. FOLIC ACID [Concomitant]
  3. CO-CODAMOL (PANADEINE CO) [Concomitant]
  4. PARACETAMOL [Concomitant]

REACTIONS (4)
  - INTRA-UTERINE DEATH [None]
  - MATERNAL DRUGS AFFECTING FOETUS [None]
  - PUBIC PAIN [None]
  - STILLBIRTH [None]
